FAERS Safety Report 21000515 (Version 1)
Quarter: 2022Q2

REPORT INFORMATION
  Report Type: Spontaneous
  Country: SK (occurrence: SK)
  Receive Date: 20220623
  Receipt Date: 20220623
  Transmission Date: 20220721
  Serious: Yes (Other)
  Sender: FDA-Public Use
  Company Number: None

PATIENT
  Age: 62 Year
  Sex: Male
  Weight: 87 kg

DRUGS (7)
  1. PIPERACILLIN SODIUM\TAZOBACTAM SODIUM [Suspect]
     Active Substance: PIPERACILLIN SODIUM\TAZOBACTAM SODIUM
     Indication: Cholecystitis acute
     Dosage: 4,5G - 4,5G - 4,5G - 4,5G
     Dates: start: 20220515, end: 20220523
  2. MESTINON [Concomitant]
     Active Substance: PYRIDOSTIGMINE BROMIDE
     Indication: Myasthenia gravis
     Dosage: 60MG - 60MG - 60MG
     Dates: start: 202101
  3. PANTOPRAZOLE SODIUM [Concomitant]
     Active Substance: PANTOPRAZOLE SODIUM
     Indication: Gastrooesophageal reflux disease
     Dosage: 1 - 0 - 1
     Dates: start: 20220513
  4. MESOCAIN [Concomitant]
     Indication: Cholecystitis
     Dosage: 1- 1 - 1
     Dates: start: 20220517
  5. Prednison L??iva [Concomitant]
     Indication: Myasthenia gravis
     Dosage: 5MG - 0 - 0
     Dates: start: 202101
  6. BENFOTIAMINE\CYANOCOBALAMIN\PYRIDOXINE HYDROCHLORIDE [Concomitant]
     Active Substance: BENFOTIAMINE\CYANOCOBALAMIN\PYRIDOXINE HYDROCHLORIDE
     Dosage: 1 - 0 - 0
  7. ANALGIN [Concomitant]
     Indication: Cholecystitis
     Dosage: 1 - 1 - 1
     Dates: start: 20220517

REACTIONS (1)
  - Drug-induced liver injury [Recovering/Resolving]

NARRATIVE: CASE EVENT DATE: 20220523
